FAERS Safety Report 6240677-1 (Version None)
Quarter: 2009Q2

REPORT INFORMATION
  Report Type: 
  Country: None (occurrence: None)
  Receive Date: 20090623
  Receipt Date: 20090108
  Transmission Date: 20091009
  Serious: No
  Sender: FDA-Public Use
  Company Number: US-ASTRAZENECA-2009UW00668

PATIENT
  Sex: Male

DRUGS (2)
  1. PULMICORT RESPULES [Suspect]
     Dosage: UNKNOWN
     Route: 055
  2. XOPENEX [Suspect]
     Dosage: UNKNOWN
     Route: 065

REACTIONS (1)
  - HEART RATE INCREASED [None]
